FAERS Safety Report 14240627 (Version 2)
Quarter: 2018Q1

REPORT INFORMATION
  Report Type: Spontaneous
  Country: CA (occurrence: CA)
  Receive Date: 20171130
  Receipt Date: 20180116
  Transmission Date: 20180508
  Serious: Yes (Other)
  Sender: FDA-Public Use
  Company Number: CA-PFIZER INC-2017511525

PATIENT
  Age: 78 Year
  Sex: Female

DRUGS (8)
  1. PREDNISONE. [Concomitant]
     Active Substance: PREDNISONE
     Dosage: 8 TABLETS DAILY (WEEKLY WEANING TO BE STOPPED END OF JANUARY 2018)
     Route: 048
  2. TELMISARTAN + HIDROCLOROTIAZIDA SANDOZ [Concomitant]
     Dosage: 80/12.5 MG, DAILY
     Route: 048
  3. VENTOLIN [Concomitant]
     Active Substance: ALBUTEROL SULFATE
     Dosage: 2 PUFFS 4X/DAY, AS NEEDED
  4. INFLECTRA [Suspect]
     Active Substance: INFLIXIMAB-DYYB
     Indication: COLITIS ULCERATIVE
     Dosage: 7.5MG/KG DAY 0 THEN 700MG EVERY 2, 6 THEN EVERY 8 WEEKS
     Route: 042
     Dates: start: 20171118
  5. ASACOL [Concomitant]
     Active Substance: MESALAMINE
     Dosage: 800 MG, 3X/DAY
     Route: 048
  6. SOLU-MEDROL [Suspect]
     Active Substance: METHYLPREDNISOLONE SODIUM SUCCINATE
     Dosage: 40 MG, 2X/DAY
     Route: 042
     Dates: start: 20171118, end: 20171118
  7. OMEPRAZOLE. [Concomitant]
     Active Substance: OMEPRAZOLE
     Dosage: 200 MG, DAILY
     Route: 048
  8. ATIVAN [Concomitant]
     Active Substance: LORAZEPAM
     Dosage: 1MG AT BEDTIME AS NEEDED
     Route: 060

REACTIONS (3)
  - Frequent bowel movements [Recovering/Resolving]
  - Drug effect incomplete [Recovering/Resolving]
  - Rectal haemorrhage [Recovered/Resolved]
